FAERS Safety Report 19101631 (Version 20)
Quarter: 2022Q2

REPORT INFORMATION
  Report Type: Report from Study
  Country: JP (occurrence: JP)
  Receive Date: 20210407
  Receipt Date: 20220531
  Transmission Date: 20220721
  Serious: Yes (Hospitalization, Other)
  Sender: FDA-Public Use
  Company Number: JP-BRISTOL-MYERS SQUIBB COMPANY-BMS-2021-031668

PATIENT
  Age: 65 Year
  Sex: Male
  Weight: 63.8 kg

DRUGS (8)
  1. YERVOY [Suspect]
     Active Substance: IPILIMUMAB
     Indication: Non-small cell lung cancer recurrent
     Route: 041
     Dates: start: 20210305, end: 20210305
  2. YERVOY [Suspect]
     Active Substance: IPILIMUMAB
  3. YERVOY [Suspect]
     Active Substance: IPILIMUMAB
  4. OPDIVO [Suspect]
     Active Substance: NIVOLUMAB
     Indication: Non-small cell lung cancer recurrent
     Route: 041
     Dates: start: 20210305, end: 20210305
  5. OPDIVO [Suspect]
     Active Substance: NIVOLUMAB
     Dosage: ??
     Route: 041
     Dates: start: 20210604
  6. CARBOPLATIN [Suspect]
     Active Substance: CARBOPLATIN
     Indication: Non-small cell lung cancer
     Route: 065
     Dates: start: 20210305, end: 20210305
  7. CARBOPLATIN [Suspect]
     Active Substance: CARBOPLATIN
  8. ALIMTA [Suspect]
     Active Substance: PEMETREXED DISODIUM
     Indication: Non-small cell lung cancer
     Route: 065
     Dates: start: 20210305, end: 20210305

REACTIONS (5)
  - Febrile neutropenia [Recovered/Resolved]
  - Pyrexia [Not Recovered/Not Resolved]
  - Inappropriate antidiuretic hormone secretion [Not Recovered/Not Resolved]
  - Malignant neoplasm progression [Recovering/Resolving]
  - Pneumonitis [Unknown]

NARRATIVE: CASE EVENT DATE: 20210316
